FAERS Safety Report 10268594 (Version 1)
Quarter: 2014Q2

REPORT INFORMATION
  Report Type: Spontaneous
  Country: US (occurrence: None)
  Receive Date: 20140627
  Receipt Date: 20140627
  Transmission Date: 20141212
  Serious: Yes (Life-Threatening, Hospitalization, Disabling)
  Sender: FDA-Public Use
  Company Number: None

PATIENT
  Age: 83 Year
  Sex: Female

DRUGS (1)
  1. SULFANETHOXAZOLE-TMP [Suspect]
     Indication: BURNS SECOND DEGREE
     Dosage: 2X A DAY
     Dates: start: 20140616, end: 20140620

REACTIONS (9)
  - Gait disturbance [None]
  - Somnolence [None]
  - Tremor [None]
  - Hyperhidrosis [None]
  - Decreased appetite [None]
  - Headache [None]
  - Confusional state [None]
  - Cerebrovascular accident [None]
  - Platelet count decreased [None]
